FAERS Safety Report 8286591-1 (Version None)
Quarter: 2012Q2

REPORT INFORMATION
  Report Type: 
  Country: None (occurrence: None)
  Receive Date: 20120416
  Receipt Date: 20120330
  Transmission Date: 20120825
  Serious: Yes (Hospitalization, Other)
  Sender: FDA-Public Use
  Company Number: US-BAYER-2011-010912

PATIENT
  Sex: Female
  Weight: 154 kg

DRUGS (20)
  1. PHENERGAN HCL [Concomitant]
     Indication: NAUSEA
     Dosage: 15 MG, PRN (EVERY 6 HOURS AS NEEDED)
     Route: 048
     Dates: start: 20070319
  2. COZAAR [Concomitant]
     Dosage: 50 MG, UNK
     Route: 048
     Dates: start: 20070319
  3. MULTI-VITAMIN [Concomitant]
     Dosage: UNK
     Dates: start: 20070502
  4. YASMIN [Suspect]
     Indication: ACNE
     Dosage: UNK
     Route: 048
     Dates: start: 20020501, end: 20030401
  5. LIPITOR [Concomitant]
     Dosage: UNK
     Route: 048
     Dates: start: 19990101
  6. YAZ [Suspect]
     Indication: CONTRACEPTION
  7. YASMIN [Suspect]
     Indication: CONTRACEPTION
  8. GYNE-LOTRIMIN [Concomitant]
     Dosage: 200 MG, UNK
     Dates: start: 20070714
  9. PROTONIX [Concomitant]
     Dosage: 40 MG, UNK
     Route: 048
     Dates: start: 20070319
  10. TYLENOL (CAPLET) [Concomitant]
     Dosage: 1000 MG, UNK
     Dates: start: 20070523
  11. YAZ [Suspect]
     Indication: ACNE
     Dosage: UNK
     Route: 048
     Dates: start: 20020501, end: 20030401
  12. AUGMENTIN '125' [Concomitant]
     Dosage: 875 MG, QD
     Route: 048
     Dates: start: 20070209, end: 20070223
  13. SEASONALE [Concomitant]
  14. NEXIUM [Concomitant]
     Dosage: 40 MG, QD
     Route: 048
     Dates: start: 20070319
  15. MEDROL [Concomitant]
     Dosage: 4 MG, UNK
     Route: 048
     Dates: start: 20070209, end: 20070216
  16. DIFLUCAN [Concomitant]
     Dosage: 150 MG, QD
     Dates: start: 20070301
  17. PROZAC [Concomitant]
     Dosage: 40 MG, QD
     Route: 048
     Dates: start: 20070502
  18. LISINOPRIL [Concomitant]
     Indication: BLOOD PRESSURE ABNORMAL
     Dosage: UNK
     Route: 048
     Dates: start: 20060101
  19. DICLOFENAC SODIUM [Concomitant]
     Dosage: 75 MG, BID (TWICE DAILY)
     Route: 048
     Dates: start: 20070206, end: 20070226
  20. ZOCOR [Concomitant]
     Dosage: 40 MG, QD
     Route: 048
     Dates: start: 20070319

REACTIONS (4)
  - BILIARY DYSKINESIA [None]
  - GALLBLADDER DISORDER [None]
  - PAIN [None]
  - CHOLECYSTITIS CHRONIC [None]
